FAERS Safety Report 18399148 (Version 1)
Quarter: 2020Q4

REPORT INFORMATION
  Report Type: Spontaneous
  Country: US (occurrence: US)
  Receive Date: 20201010
  Receipt Date: 20201010
  Transmission Date: 20210114
  Serious: Yes (Life-Threatening, Hospitalization)
  Sender: FDA-Public Use
  Company Number: None

PATIENT
  Age: 53 Year
  Sex: Male
  Weight: 113 kg

DRUGS (1)
  1. RUSH (AMYL NITRITE) [Suspect]
     Active Substance: AMYL NITRITE
     Indication: SEXUAL DYSFUNCTION
     Route: 045
     Dates: start: 20201009, end: 20201009

REACTIONS (3)
  - Blood methaemoglobin present [None]
  - Hypoxia [None]
  - Vomiting [None]

NARRATIVE: CASE EVENT DATE: 20201009
